FAERS Safety Report 9759969 (Version 4)
Quarter: 2014Q2

REPORT INFORMATION
  Report Type: Spontaneous
  Country: US (occurrence: US)
  Receive Date: 20131216
  Receipt Date: 20140416
  Transmission Date: 20141212
  Serious: Yes (Death, Hospitalization, Other)
  Sender: FDA-Public Use
  Company Number: US-BAXTER-2013BAX049490

PATIENT
  Sex: Female

DRUGS (5)
  1. DIANEAL LOW CALCIUM [Suspect]
     Indication: PERITONEAL DIALYSIS
     Route: 033
     Dates: end: 20140311
  2. DIANEAL LOW CALCIUM [Suspect]
     Indication: PERITONEAL DIALYSIS
     Route: 033
     Dates: end: 20140311
  3. DIANEAL LOW CALCIUM [Suspect]
     Indication: PERITONEAL DIALYSIS
     Route: 033
     Dates: end: 20140311
  4. DIANEAL LOW CALCIUM (ULTRABAG) [Suspect]
     Indication: RENAL FAILURE CHRONIC
     Route: 033
     Dates: start: 20130903, end: 20140311
  5. DIANEAL LOW CALCIUM (ULTRABAG) [Suspect]
     Indication: PERITONEAL DIALYSIS

REACTIONS (13)
  - Sepsis [Fatal]
  - Respiratory arrest [Fatal]
  - Coma [Unknown]
  - Cerebrovascular accident [Unknown]
  - Ketoacidosis [Recovering/Resolving]
  - Infection [Unknown]
  - White blood cell count decreased [Unknown]
  - Blood pressure fluctuation [Unknown]
  - Diabetes mellitus inadequate control [Unknown]
  - Aphagia [Unknown]
  - Hypertensive crisis [Unknown]
  - Hyperglycaemia [Unknown]
  - Hypertension [Recovering/Resolving]
